FAERS Safety Report 19983329 (Version 1)
Quarter: 2021Q4

REPORT INFORMATION
  Report Type: Spontaneous
  Country: US (occurrence: US)
  Receive Date: 20211022
  Receipt Date: 20211022
  Transmission Date: 20220303
  Serious: Yes (Life-Threatening, Other)
  Sender: FDA-Public Use
  Company Number: None

PATIENT
  Age: 50 Year
  Sex: Male
  Weight: 96.2 kg

DRUGS (1)
  1. BARICITINIB [Suspect]
     Active Substance: BARICITINIB
     Indication: COVID-19
     Route: 048
     Dates: start: 20210913, end: 20210926

REACTIONS (7)
  - Sputum culture positive [None]
  - Klebsiella test positive [None]
  - Stenotrophomonas test positive [None]
  - Blood culture positive [None]
  - Bacterial infection [None]
  - Staphylococcal infection [None]
  - Acute kidney injury [None]

NARRATIVE: CASE EVENT DATE: 20211022
